FAERS Safety Report 6086019-6 (Version None)
Quarter: 2009Q1

REPORT INFORMATION
  Report Type: 
  Country: None (occurrence: None)
  Receive Date: 20090220
  Receipt Date: 20090211
  Transmission Date: 20090719
  Serious: Yes (Hospitalization, Other)
  Sender: FDA-Public Use
  Company Number: US-AMGEN-QUU333447

PATIENT
  Sex: Female

DRUGS (3)
  1. ENBREL [Suspect]
     Indication: RHEUMATOID ARTHRITIS
     Route: 058
     Dates: start: 20080205
  2. IMURAN [Concomitant]
  3. PLAQUENIL [Concomitant]

REACTIONS (2)
  - DYSPNOEA [None]
  - PULMONARY FIBROSIS [None]
